FAERS Safety Report 5213237-9 (Version None)
Quarter: 2007Q1

REPORT INFORMATION
  Report Type: 
  Country: None (occurrence: None)
  Receive Date: 20070119
  Receipt Date: 20070108
  Transmission Date: 20070707
  Serious: Yes (Life-Threatening, Hospitalization, Other)
  Sender: FDA-Public Use
  Company Number: GB-NOVOPROD-258958

PATIENT
  Age: 23 Year
  Sex: Male
  Weight: 70 kg

DRUGS (2)
  1. LEVEMIR [Suspect]
     Indication: DIABETES MELLITUS INSULIN-DEPENDENT
     Dosage: 300 IU, UNK
     Route: 058
     Dates: start: 20061201, end: 20061201
  2. NOVORAPID FLEXPEN [Suspect]
     Indication: DIABETES MELLITUS INSULIN-DEPENDENT
     Dosage: 1800 IU, UNK
     Route: 058
     Dates: start: 20061201, end: 20061201

REACTIONS (3)
  - INTENTIONAL OVERDOSE [None]
  - LIPOHYPERTROPHY [None]
  - SUICIDE ATTEMPT [None]
